FAERS Safety Report 13380669 (Version 1)
Quarter: 2017Q1

REPORT INFORMATION
  Report Type: Spontaneous
  Country: US (occurrence: US)
  Receive Date: 20170328
  Receipt Date: 20170328
  Transmission Date: 20170429
  Serious: Yes (Disabling)
  Sender: FDA-Public Use
  Company Number: None

PATIENT
  Age: 12 Year
  Sex: Male
  Weight: 29.25 kg

DRUGS (3)
  1. MIRALAX [Suspect]
     Active Substance: POLYETHYLENE GLYCOL 3350
     Indication: CONSTIPATION
     Route: 048
  2. FIBER GUMMIES [Concomitant]
  3. ZYRTEX [Concomitant]

REACTIONS (6)
  - Anger [None]
  - Anxiety [None]
  - Aggression [None]
  - Nightmare [None]
  - Mood altered [None]
  - Obsessive-compulsive disorder [None]
